FAERS Safety Report 6912802 (Version 5)
Quarter: 2013Q3

REPORT INFORMATION
  Report Type: Spontaneous
  Country: CA (occurrence: CA)
  Receive Date: 20090218
  Receipt Date: 20130724
  Transmission Date: 20140515
  Serious: Yes (Hospitalization, Other)
  Sender: FDA-Public Use
  Company Number: CA-PFIZER INC-2009158771

PATIENT
  Age: 34 Year
  Sex: Male

DRUGS (3)
  1. CELEBREX [Suspect]
     Indication: ARTERIAL OCCLUSIVE DISEASE
     Dosage: 400 MG, 2X/DAY
     Route: 048
     Dates: start: 200309, end: 200408
  2. PERCOCET [Suspect]
     Indication: PAIN
     Dosage: UNK
     Dates: start: 2004
  3. OXYCODONE [Suspect]
     Indication: PAIN
     Dosage: UNK
     Dates: start: 2004

REACTIONS (31)
  - Gangrene [Recovered/Resolved]
  - Toe amputation [Unknown]
  - Finger amputation [Not Recovered/Not Resolved]
  - Arterial occlusive disease [Unknown]
  - Femoral artery occlusion [Unknown]
  - Venous injury [Unknown]
  - Ischaemia [Unknown]
  - Chest pain [Unknown]
  - Suicidal ideation [Unknown]
  - Drug dependence [Not Recovered/Not Resolved]
  - Infection [Unknown]
  - Pain [Unknown]
  - Pain in extremity [Unknown]
  - Abdominal pain [Unknown]
  - Vomiting [Recovered/Resolved]
  - Muscular weakness [Unknown]
  - Muscle spasms [Unknown]
  - Insomnia [Unknown]
  - Anger [Unknown]
  - Frustration [Unknown]
  - Anxiety [Unknown]
  - Chills [Unknown]
  - Hyperhidrosis [Unknown]
  - Nausea [Unknown]
  - Pain [Unknown]
  - Abdominal discomfort [Unknown]
  - Pain [Unknown]
  - Incision site pain [Unknown]
  - Incision site erythema [Unknown]
  - Abdominal discomfort [Unknown]
  - Emotional distress [Unknown]
